FAERS Safety Report 18274266 (Version 5)
Quarter: 2020Q4

REPORT INFORMATION
  Report Type: Report from Study
  Country: IL (occurrence: IL)
  Receive Date: 20200916
  Receipt Date: 20201221
  Transmission Date: 20210113
  Serious: Yes (Hospitalization, Other)
  Sender: FDA-Public Use
  Company Number: IL-JNJFOC-20200906148

PATIENT
  Age: 59 Year
  Sex: Female

DRUGS (4)
  1. SIMPONI [Suspect]
     Active Substance: GOLIMUMAB
     Indication: ANKYLOSING SPONDYLITIS
     Route: 058
     Dates: start: 20161206
  2. PLAVIX [Concomitant]
     Active Substance: CLOPIDOGREL BISULFATE
  3. NEXIUM [Concomitant]
     Active Substance: ESOMEPRAZOLE MAGNESIUM
  4. IMURAN [Concomitant]
     Active Substance: AZATHIOPRINE
     Route: 065
     Dates: start: 20161206

REACTIONS (4)
  - Pulmonary haemorrhage [Recovered/Resolved]
  - Hypotension [Recovered/Resolved]
  - Pulmonary hypertension [Recovering/Resolving]
  - Pain in extremity [Not Recovered/Not Resolved]

NARRATIVE: CASE EVENT DATE: 2018
